FAERS Safety Report 4445491-5 (Version None)
Quarter: 2004Q3

REPORT INFORMATION
  Report Type: 
  Country: None (occurrence: None)
  Receive Date: 20040812
  Receipt Date: 20031010
  Transmission Date: 20050211
  Serious: Yes (Hospitalization)
  Sender: FDA-Public Use
  Company Number: 200318869US

PATIENT
  Age: 67 Year
  Sex: Male

DRUGS (3)
  1. LASIX [Suspect]
     Indication: OEDEMA
  2. LEXAPRO [Suspect]
     Indication: DEPRESSION
     Dosage: 10 MG QD PO
     Route: 048
     Dates: start: 20030401, end: 20030801
  3. METOLAZONE [Suspect]
     Indication: OEDEMA

REACTIONS (1)
  - HYPONATRAEMIA [None]
